FAERS Safety Report 7315204-8 (Version None)
Quarter: 2011Q1

REPORT INFORMATION
  Report Type: 
  Country: None (occurrence: None)
  Receive Date: 20110218
  Receipt Date: 20110218
  Transmission Date: 20110831
  Serious: Yes (Death)
  Sender: FDA-Public Use
  Company Number: None

PATIENT
  Sex: Female

DRUGS (4)
  1. SEROQUEL [Suspect]
     Indication: PSYCHOTIC DISORDER
     Dosage: 50MG Q HS + Q 4HRS PRN PO
     Route: 048
  2. SEROQUEL [Suspect]
     Indication: TRAUMATIC BRAIN INJURY
     Dosage: 50MG Q HS + Q 4HRS PRN PO
     Route: 048
  3. SEROQUEL [Suspect]
     Indication: PSYCHOTIC DISORDER
     Dosage: 200MG Q HS PO
     Route: 048
  4. SEROQUEL [Suspect]
     Indication: TRAUMATIC BRAIN INJURY
     Dosage: 200MG Q HS PO
     Route: 048

REACTIONS (9)
  - ANAPHYLACTIC REACTION [None]
  - SCREAMING [None]
  - UNRESPONSIVE TO STIMULI [None]
  - OROPHARYNGEAL PAIN [None]
  - ASPHYXIA [None]
  - COUGH [None]
  - RHINORRHOEA [None]
  - PYREXIA [None]
  - BRONCHITIS [None]
